FAERS Safety Report 7073497-9 (Version None)
Quarter: 2010Q4

REPORT INFORMATION
  Report Type: 
  Country: None (occurrence: None)
  Receive Date: 20101029
  Receipt Date: 20100831
  Transmission Date: 20110411
  Serious: Yes (Hospitalization)
  Sender: FDA-Public Use
  Company Number: A0867636A

PATIENT
  Age: 74 Year
  Sex: Male

DRUGS (12)
  1. ADVAIR DISKUS 100/50 [Suspect]
     Indication: CHRONIC OBSTRUCTIVE PULMONARY DISEASE
     Dosage: 1PUFF TWICE PER DAY
     Route: 055
  2. WELLBUTRIN [Suspect]
     Indication: PRODUCT USED FOR UNKNOWN INDICATION
     Dosage: 150MG TWICE PER DAY
     Route: 048
  3. IPRATROPIUM BROMIDE + SALBUTAMOL SULPHATE [Concomitant]
  4. PULMICORT [Concomitant]
  5. MUCINEX [Concomitant]
     Dosage: 600MG TWICE PER DAY
  6. THEOPHYLLINE [Concomitant]
     Dosage: 100MG TWICE PER DAY
  7. DILTIAZEM [Concomitant]
  8. PREDNISONE [Concomitant]
  9. ASACOL [Concomitant]
     Dosage: 1200MG TWICE PER DAY
  10. DOXAZOSIN MESYLATE [Concomitant]
  11. METAMUCIL-2 [Concomitant]
  12. LORAZEPAM [Concomitant]

REACTIONS (1)
  - PNEUMONIA [None]
